FAERS Safety Report 22217669 (Version 3)
Quarter: 2023Q2

REPORT INFORMATION
  Report Type: Spontaneous
  Country: NZ (occurrence: NZ)
  Receive Date: 20230417
  Receipt Date: 20230424
  Transmission Date: 20230722
  Serious: Yes (Death, Hospitalization, Other)
  Sender: FDA-Public Use
  Company Number: NZ-MYLANLABS-2023M1041052

PATIENT
  Age: 70 Year
  Sex: Female

DRUGS (1)
  1. CLOZARIL [Suspect]
     Active Substance: CLOZAPINE
     Indication: Schizophrenia
     Dosage: UNK
     Route: 048
     Dates: start: 19961122, end: 20230309

REACTIONS (3)
  - Metastatic neoplasm [Fatal]
  - General physical health deterioration [Unknown]
  - Hospitalisation [Unknown]

NARRATIVE: CASE EVENT DATE: 20230301
